FAERS Safety Report 11564424 (Version 1)
Quarter: 2015Q3

REPORT INFORMATION
  Report Type: Spontaneous
  Country: US (occurrence: US)
  Receive Date: 20150928
  Receipt Date: 20150928
  Transmission Date: 20151125
  Serious: No
  Sender: FDA-Public Use
  Company Number: US-PFIZER INC-2015314349

PATIENT
  Sex: Male

DRUGS (2)
  1. NEURONTIN [Suspect]
     Active Substance: GABAPENTIN
     Dosage: 2 DF, TWO PILLS FOR A WEEK
  2. NEURONTIN [Suspect]
     Active Substance: GABAPENTIN
     Dosage: 1 DF, TOOK ONE PILL FOR A WEEK

REACTIONS (1)
  - Dyspnoea [Unknown]
